FAERS Safety Report 18628086 (Version 1)
Quarter: 2020Q4

REPORT INFORMATION
  Report Type: Spontaneous
  Country: US (occurrence: US)
  Receive Date: 20201217
  Receipt Date: 20201217
  Transmission Date: 20210114
  Serious: Yes (Other)
  Sender: FDA-Public Use
  Company Number: None

PATIENT
  Age: 78 Year
  Sex: Female
  Weight: 68 kg

DRUGS (3)
  1. ONDANSETRON 4 MG PO Q8 HOURS PRN NAUSEA /VOMITING [Concomitant]
     Dates: start: 20201213
  2. BAMLANIVIMAB. [Suspect]
     Active Substance: BAMLANIVIMAB
     Indication: COVID-19
     Dosage: ?          OTHER FREQUENCY:ONCE;?
     Route: 042
     Dates: start: 20201216, end: 20201216
  3. PROMETHAZINE 12.5 MG PO TABLETS Q6 HOURS PRN NAUSEA/VOMITING [Concomitant]
     Dates: start: 20201214

REACTIONS (3)
  - Ataxia [None]
  - Dizziness [None]
  - Romberg test positive [None]

NARRATIVE: CASE EVENT DATE: 20201216
